FAERS Safety Report 5905812-0 (Version None)
Quarter: 2008Q4

REPORT INFORMATION
  Report Type: 
  Country: None (occurrence: None)
  Receive Date: 20081002
  Receipt Date: 20080923
  Transmission Date: 20090506
  Serious: Yes (Other)
  Sender: FDA-Public Use
  Company Number: B0538341A

PATIENT
  Age: 66 Year
  Sex: Male

DRUGS (3)
  1. LAMOTRIGINE [Suspect]
     Dosage: 50MG PER DAY
     Dates: start: 20070220, end: 20070222
  2. NARDIL [Suspect]
     Indication: DEPRESSION
     Dosage: 45MG PER DAY
     Dates: start: 20031201
  3. PROZAC [Concomitant]

REACTIONS (4)
  - DRUG INEFFECTIVE [None]
  - DRUG INTERACTION [None]
  - DYSKINESIA [None]
  - MUSCLE TWITCHING [None]
